FAERS Safety Report 8489456-5 (Version None)
Quarter: 2012Q2

REPORT INFORMATION
  Report Type: 
  Country: None (occurrence: None)
  Receive Date: 20120628
  Receipt Date: 20120628
  Transmission Date: 20120825
  Serious: Yes (Life-Threatening, Hospitalization)
  Sender: FDA-Public Use
  Company Number: None

PATIENT
  Sex: Female

DRUGS (1)
  1. AZITHROMYCIN [Suspect]
     Indication: COUGH
     Dosage: 250 MG ONCE A DAY PO
     Route: 048
     Dates: start: 20120611, end: 20120613

REACTIONS (4)
  - HAEMORRHAGE [None]
  - GAIT DISTURBANCE [None]
  - ABDOMINAL PAIN [None]
  - EATING DISORDER [None]
